FAERS Safety Report 9753694 (Version 1)
Quarter: 2013Q4

REPORT INFORMATION
  Report Type: Spontaneous
  Country: US (occurrence: US)
  Receive Date: 20131213
  Receipt Date: 20131213
  Transmission Date: 20140711
  Serious: No
  Sender: FDA-Public Use
  Company Number: US-GILEAD-2009-0026075

PATIENT
  Age: 78 Year
  Sex: Female
  Weight: 76.2 kg

DRUGS (10)
  1. LETAIRIS [Suspect]
     Indication: PULMONARY ARTERIAL HYPERTENSION
     Route: 048
     Dates: start: 20080814
  2. XANAX [Concomitant]
  3. CADUET [Concomitant]
  4. FIORINOL [Concomitant]
  5. FLUOXETINE [Concomitant]
  6. METFORMIN [Concomitant]
  7. LABETALOL [Concomitant]
  8. PREVACID [Concomitant]
  9. WARFARIN [Concomitant]
  10. LORCET [Concomitant]

REACTIONS (1)
  - Local swelling [Recovering/Resolving]
